FAERS Safety Report 13798213 (Version 2)
Quarter: 2017Q3

REPORT INFORMATION
  Report Type: Spontaneous
  Country: NL (occurrence: NL)
  Receive Date: 20170727
  Receipt Date: 20170803
  Transmission Date: 20171127
  Serious: No
  Sender: FDA-Public Use
  Company Number: NL-AUROBINDO-AUR-APL-2017-37415

PATIENT
  Age: 39 Year
  Sex: Female
  Weight: 75 kg

DRUGS (1)
  1. METRONIDAZOLE 500MG FILM-COATED TABLET [Suspect]
     Active Substance: METRONIDAZOLE
     Indication: GIARDIASIS
     Dosage: 2000 MG, ONCE A DAY
     Route: 048
     Dates: start: 20170505

REACTIONS (7)
  - Hallucination [Recovered/Resolved]
  - Somnolence [Recovered/Resolved]
  - Dizziness [Recovered/Resolved]
  - Nausea [Recovered/Resolved]
  - Headache [Recovered/Resolved]
  - Dysgeusia [Recovered/Resolved]
  - Coordination abnormal [Recovered/Resolved]

NARRATIVE: CASE EVENT DATE: 20170505
